FAERS Safety Report 9452971 (Version 1)
Quarter: 2013Q3

REPORT INFORMATION
  Report Type: Not Available
  Country: JP (occurrence: JP)
  Receive Date: 20130812
  Receipt Date: 20130812
  Transmission Date: 20140515
  Serious: Yes (Disabling, Other)
  Sender: FDA-Public Use
  Company Number: JP-ASTELLAS-2013JP007904

PATIENT
  Age: 29 Year
  Sex: Female

DRUGS (2)
  1. PROTOPIC [Suspect]
     Indication: DERMATITIS ATOPIC
     Dosage: 0.1 %, UNK
     Route: 061
     Dates: end: 2013
  2. CORTICOSTEROID NOS [Suspect]
     Indication: DERMATITIS ATOPIC
     Route: 061

REACTIONS (4)
  - Lymphadenopathy [Not Recovered/Not Resolved]
  - Lymphoma [Unknown]
  - Photosensitivity reaction [Not Recovered/Not Resolved]
  - Skin erosion [Not Recovered/Not Resolved]
